FAERS Safety Report 14964722 (Version 1)
Quarter: 2018Q2

REPORT INFORMATION
  Report Type: Spontaneous
  Country: JP (occurrence: JP)
  Receive Date: 20180601
  Receipt Date: 20180601
  Transmission Date: 20180711
  Serious: Yes (Hospitalization)
  Sender: FDA-Public Use
  Company Number: JP-JNJFOC-20180539954

PATIENT

DRUGS (1)
  1. REMICADE [Suspect]
     Active Substance: INFLIXIMAB
     Indication: TAKAYASU^S ARTERITIS
     Route: 042

REACTIONS (3)
  - Product use in unapproved indication [Unknown]
  - Off label use [Unknown]
  - Infusion related reaction [Unknown]
